FAERS Safety Report 5650461-5 (Version None)
Quarter: 2008Q1

REPORT INFORMATION
  Report Type: 
  Country: None (occurrence: None)
  Receive Date: 20080304
  Receipt Date: 20080304
  Transmission Date: 20080703
  Serious: Yes (Hospitalization)
  Sender: FDA-Public Use
  Company Number: None

PATIENT
  Age: 58 Year
  Sex: Male

DRUGS (15)
  1. AUGMENTIN '875' [Suspect]
     Indication: CHRONIC OBSTRUCTIVE PULMONARY DISEASE
     Dosage: 875 MG  BID  PO
     Route: 048
     Dates: start: 20071010, end: 20071013
  2. WARFARIN SODIUM [Suspect]
     Indication: DEEP VEIN THROMBOSIS
     Dosage: 5 MG  DAILY  PO
     Route: 048
     Dates: start: 20070920, end: 20071013
  3. ZOLPIDEM [Concomitant]
  4. LORAZEPAM [Concomitant]
  5. OXYCODONE HCL [Concomitant]
  6. METOPROLOL TARTRATE [Concomitant]
  7. COMPAZINE [Concomitant]
  8. PREDNISONE TAB [Concomitant]
  9. ASPIRIN [Concomitant]
  10. ZOCOR [Concomitant]
  11. PRILOSEC [Concomitant]
  12. VENTOLIN [Concomitant]
  13. NITROGLYCERIN [Concomitant]
  14. COUMADIN [Concomitant]
  15. HYDROCODONE COUGH SYRUP [Concomitant]

REACTIONS (2)
  - EPISTAXIS [None]
  - INTERNATIONAL NORMALISED RATIO INCREASED [None]
